FAERS Safety Report 7643701-4 (Version None)
Quarter: 2011Q3

REPORT INFORMATION
  Report Type: 
  Country: None (occurrence: None)
  Receive Date: 20110722
  Receipt Date: 20110708
  Transmission Date: 20111222
  Serious: Yes (Hospitalization, Other)
  Sender: FDA-Public Use
  Company Number: 11-000754

PATIENT
  Age: 67 Year
  Sex: Female
  Weight: 63.5 kg

DRUGS (1)
  1. ESTRACE [Suspect]
     Indication: BLADDER PROLAPSE
     Dosage: 1 G, QD, VAGINAL
     Route: 067
     Dates: start: 20100701, end: 20100801

REACTIONS (6)
  - MYOCARDIAL INFARCTION [None]
  - BLOOD PRESSURE INCREASED [None]
  - WEIGHT INCREASED [None]
  - BUNDLE BRANCH BLOCK [None]
  - DYSPNOEA [None]
  - AMNESIA [None]
